FAERS Safety Report 11981115 (Version 1)
Quarter: 2016Q1

REPORT INFORMATION
  Report Type: Spontaneous
  Country: DE (occurrence: DE)
  Receive Date: 20160129
  Receipt Date: 20160129
  Transmission Date: 20160526
  Serious: Yes (Other)
  Sender: FDA-Public Use
  Company Number: GXKR2016DE000700

PATIENT

DRUGS (5)
  1. ESOMEPRAZOLE [Suspect]
     Active Substance: ESOMEPRAZOLE
     Indication: GASTROOESOPHAGEAL REFLUX DISEASE
     Dosage: 80 [MG/D ]/ UNTIL WEEK 6: 80 MG/D, AFTER WEEK 6: 40 MG/D
     Route: 064
     Dates: start: 20121212, end: 20130215
  2. GAVISCON [Concomitant]
     Active Substance: ALUMINUM HYDROXIDE\MAGNESIUM CARBONATE
     Indication: GASTROOESOPHAGEAL REFLUX DISEASE
     Dosage: 1 TO 3 TIMES PER DAY IF REQUIRED
     Route: 064
     Dates: start: 20121212, end: 20130922
  3. FOLIO JODFREI [Concomitant]
     Indication: PROPHYLAXIS OF NEURAL TUBE DEFECT
     Dosage: 0.4 [MG/D ]
     Route: 064
  4. PANTOPRAZOLE [Suspect]
     Active Substance: PANTOPRAZOLE SODIUM
     Indication: GASTROOESOPHAGEAL REFLUX DISEASE
     Dosage: 60 [MG/D ]/ FOR A FEW DAYS 60 MG/D THAN 40 MG/D
     Route: 064
     Dates: start: 20130216, end: 20130922
  5. ULCOGANT [Concomitant]
     Active Substance: SUCRALFATE
     Indication: GASTROOESOPHAGEAL REFLUX DISEASE
     Dosage: 1 G, TID
     Route: 064
     Dates: start: 20130208, end: 20130213

REACTIONS (1)
  - Vitiligo [Not Recovered/Not Resolved]
